FAERS Safety Report 15103619 (Version 6)
Quarter: 2018Q4

REPORT INFORMATION
  Report Type: Report from Study
  Country: PL (occurrence: PL)
  Receive Date: 20180703
  Receipt Date: 20181010
  Transmission Date: 20190204
  Serious: Yes (Death, Hospitalization)
  Sender: FDA-Public Use
  Company Number: PL-ROCHE-2103662

PATIENT
  Age: 81 Year
  Sex: Male
  Weight: 72 kg

DRUGS (8)
  1. BISOCARD [Concomitant]
     Active Substance: BISOPROLOL
     Route: 048
     Dates: start: 2008
  2. PABI-DEXAMETHASON [Concomitant]
     Route: 048
     Dates: start: 20180322, end: 20180328
  3. ROMAZIC [Concomitant]
     Route: 048
  4. ACARD [Concomitant]
     Active Substance: ASPIRIN
     Route: 048
     Dates: start: 2008, end: 20180410
  5. AMLOPIN [Concomitant]
     Active Substance: AMLODIPINE BESYLATE
     Indication: HYPERTENSION
     Route: 048
  6. ATEZOLIZUMAB. [Suspect]
     Active Substance: ATEZOLIZUMAB
     Indication: NON-SMALL CELL LUNG CANCER METASTATIC
     Dosage: DOSE OF MOST RECENT ATEZOLIZUMAB ADMINISTERED PRIOR TO AE ONSET:  01/MAR/2018
     Route: 042
  7. COMBIGAN [Concomitant]
     Active Substance: BRIMONIDINE TARTRATE\TIMOLOL MALEATE
     Indication: GLAUCOMA
     Route: 047
     Dates: start: 20180328
  8. IPP (PANTOPRAZOL) [Concomitant]
     Route: 048
     Dates: start: 20180328

REACTIONS (1)
  - Myasthenia gravis [Fatal]

NARRATIVE: CASE EVENT DATE: 20180328
